FAERS Safety Report 5413244-7 (Version None)
Quarter: 2007Q3

REPORT INFORMATION
  Report Type: 
  Country: None (occurrence: None)
  Receive Date: 20070814
  Receipt Date: 20070803
  Transmission Date: 20080115
  Serious: Yes (Disabling)
  Sender: FDA-Public Use
  Company Number: HQWYE084517JUL07

PATIENT
  Sex: Female
  Weight: 77.18 kg

DRUGS (5)
  1. EFFEXOR XR [Suspect]
     Indication: DEPRESSION
     Route: 048
     Dates: start: 19960101, end: 20070401
  2. EFFEXOR XR [Suspect]
     Route: 048
     Dates: start: 20070401, end: 20070101
  3. EFFEXOR XR [Suspect]
     Route: 048
     Dates: start: 20070101, end: 20070718
  4. EFFEXOR XR [Suspect]
     Route: 048
     Dates: start: 20070719
  5. RISPERIDONE [Concomitant]
     Indication: SLEEP DISORDER
     Dosage: ^0.5 @ HS^
     Dates: start: 20070705, end: 20070730

REACTIONS (11)
  - AGITATION [None]
  - DRUG WITHDRAWAL SYNDROME [None]
  - EMOTIONAL DISORDER [None]
  - HEADACHE [None]
  - MOBILITY DECREASED [None]
  - NAUSEA [None]
  - PHOTOPSIA [None]
  - TREMOR [None]
  - UNEVALUABLE EVENT [None]
  - VISION BLURRED [None]
  - WEIGHT INCREASED [None]
